FAERS Safety Report 23096784 (Version 4)
Quarter: 2024Q1

REPORT INFORMATION
  Report Type: Spontaneous
  Country: US (occurrence: US)
  Receive Date: 20231023
  Receipt Date: 20240123
  Transmission Date: 20240410
  Serious: No
  Sender: FDA-Public Use
  Company Number: US-PFIZER INC-202300334603

PATIENT
  Age: 78 Year
  Sex: Male
  Weight: 81.65 kg

DRUGS (4)
  1. BRAFTOVI [Suspect]
     Active Substance: ENCORAFENIB
     Indication: Malignant melanoma stage IV
     Dosage: 6 CAPSULES EVERY MORNING
     Dates: start: 20231003, end: 20231206
  2. BRAFTOVI [Suspect]
     Active Substance: ENCORAFENIB
     Dosage: 6 CAPSULES EVERY MORNING
     Dates: start: 20231005
  3. MEKTOVI [Suspect]
     Active Substance: BINIMETINIB
     Indication: Malignant melanoma stage IV
     Dosage: 6 PILLS A DAY, 3 IN THE MORNING AND 3 IN THE EVENING
     Dates: start: 20231003, end: 20231206
  4. MEKTOVI [Suspect]
     Active Substance: BINIMETINIB
     Dosage: 6 PILLS A DAY, 3 IN THE MORNING AND 3 IN THE EVENING
     Route: 048
     Dates: start: 20231005

REACTIONS (9)
  - Intentional product misuse [Unknown]
  - Fatigue [Unknown]
  - Asthenia [Unknown]
  - Mobility decreased [Unknown]
  - Visual impairment [Unknown]
  - Nodule [Unknown]
  - Haemorrhage [Unknown]
  - Dysarthria [Unknown]
  - Dyspnoea [Unknown]

NARRATIVE: CASE EVENT DATE: 20231001
